FAERS Safety Report 9432435 (Version 1)
Quarter: 2013Q3

REPORT INFORMATION
  Report Type: Spontaneous
  Country: BR (occurrence: BR)
  Receive Date: 20130731
  Receipt Date: 20130731
  Transmission Date: 20140515
  Serious: Yes (Other)
  Sender: FDA-Public Use
  Company Number: BR-PFIZER INC-2013216819

PATIENT
  Age: 55 Year
  Sex: Male

DRUGS (3)
  1. VIAGRA [Suspect]
     Indication: ERECTILE DYSFUNCTION
     Dosage: 50 MG, UNK
     Route: 048
     Dates: start: 2011
  2. VIAGRA [Suspect]
     Dosage: 2 TABLETS OF 50MG (100MG), UNSPECIFIED FREQUENCY
  3. SOLU-MEDROL [Suspect]
     Dosage: 3X/WEEK
     Route: 042
     Dates: start: 2013

REACTIONS (14)
  - Optic neuritis [Unknown]
  - Multiple sclerosis [Unknown]
  - Rheumatoid arthritis [Unknown]
  - Eye pain [Unknown]
  - Visual impairment [Unknown]
  - Eye disorder [Unknown]
  - Groin pain [Unknown]
  - Memory impairment [Unknown]
  - Human T-cell lymphotropic virus type I infection [Unknown]
  - Eye disorder [Unknown]
  - Feeling hot [Unknown]
  - Erythema [Unknown]
  - Ocular hyperaemia [Unknown]
  - Drug ineffective [Unknown]
